FAERS Safety Report 11232741 (Version 1)
Quarter: 2015Q3

REPORT INFORMATION
  Report Type: Spontaneous
  Country: US (occurrence: US)
  Receive Date: 20150701
  Receipt Date: 20150701
  Transmission Date: 20151125
  Serious: Yes (Other)
  Sender: FDA-Public Use
  Company Number: US-MEDA-2015060051

PATIENT
  Sex: Female

DRUGS (2)
  1. CONJUGATED ESTROGEN [Suspect]
     Active Substance: ESTROGENS, CONJUGATED
     Indication: MENOPAUSAL SYMPTOMS
  2. REGADENOSON [Suspect]
     Active Substance: REGADENOSON
     Indication: SINGLE PHOTON EMISSION COMPUTERISED TOMOGRAM

REACTIONS (3)
  - False positive investigation result [Unknown]
  - Electrocardiogram ST segment depression [Unknown]
  - Angina pectoris [Unknown]
